FAERS Safety Report 5487596-6 (Version None)
Quarter: 2007Q4

REPORT INFORMATION
  Report Type: 
  Country: None (occurrence: None)
  Receive Date: 20071016
  Receipt Date: 20071008
  Transmission Date: 20080405
  Serious: Yes (Hospitalization)
  Sender: FDA-Public Use
  Company Number: US-ELI_LILLY_AND_COMPANY-US200710001951

PATIENT
  Age: 14 Year
  Sex: Female

DRUGS (1)
  1. HUMULIN R [Suspect]

REACTIONS (2)
  - BLOOD GLUCOSE INCREASED [None]
  - BLOOD KETONE BODY [None]
